FAERS Safety Report 8721265 (Version 3)
Quarter: 2012Q4

REPORT INFORMATION
  Report Type: 
  Country: NL (occurrence: NL)
  Receive Date: 20120813
  Receipt Date: 20121115
  Transmission Date: 20130627
  Serious: Yes (Life-Threatening, Hospitalization, Other)
  Sender: FDA-Public Use
  Company Number: NL-GENZYME-CAMP-1002370

PATIENT
  Age: 55 Year
  Sex: Female
  Weight: 88 kg

DRUGS (5)
  1. CAMPATH [Suspect]
     Indication: RENAL TRANSPLANT
     Dosage: 15 mg, once
     Route: 058
     Dates: start: 20120803, end: 20120803
  2. TACROLIMUS [Concomitant]
     Indication: RENAL TRANSPLANT
     Dosage: 10 mg, qd
     Route: 048
     Dates: start: 20120803, end: 20120806
  3. MYCOPHENOLIC ACID [Concomitant]
     Indication: RENAL TRANSPLANT
     Dosage: 1000 mg, bid
     Route: 048
     Dates: start: 20120803, end: 20120806
  4. SOLU MEDROL [Concomitant]
     Indication: RENAL TRANSPLANT
     Dosage: 500 mg, qd
     Route: 042
     Dates: start: 20120803, end: 20120804
  5. TAVEGIL [Concomitant]
     Indication: PRODUCT USED FOR UNKNOWN INDICATION
     Dosage: 2 mg, once
     Route: 042
     Dates: start: 20120803, end: 20120803

REACTIONS (7)
  - Systemic inflammatory response syndrome [Recovered/Resolved]
  - Respiratory tract infection [Unknown]
  - Removal of renal transplant [Unknown]
  - Venous thrombosis [Unknown]
  - Cytomegalovirus infection [Unknown]
  - Thrombocytopenia [Unknown]
  - Off label use [Unknown]
